FAERS Safety Report 18285017 (Version 1)
Quarter: 2020Q3

REPORT INFORMATION
  Report Type: Spontaneous
  Country: FR (occurrence: FR)
  Receive Date: 20200918
  Receipt Date: 20200918
  Transmission Date: 20201103
  Serious: Yes (Hospitalization, Other)
  Sender: FDA-Public Use
  Company Number: FR-BIOVITRUM-2018SE23879

PATIENT
  Age: 12 Month
  Sex: Female

DRUGS (3)
  1. ASPIRINE [Suspect]
     Active Substance: ASPIRIN
     Indication: HEART DISEASE CONGENITAL
     Dosage: 3 TO 5MG / KG
     Route: 065
     Dates: start: 20170126, end: 20180117
  2. ASPIRINE [Suspect]
     Active Substance: ASPIRIN
     Indication: NEUTROPENIA
  3. SYNAGIS [Suspect]
     Active Substance: PALIVIZUMAB
     Indication: PROPHYLAXIS
     Route: 030
     Dates: start: 20171018, end: 20171122

REACTIONS (1)
  - Neutropenia [Not Recovered/Not Resolved]

NARRATIVE: CASE EVENT DATE: 201801
